FAERS Safety Report 9416442 (Version 1)
Quarter: 2013Q3

REPORT INFORMATION
  Report Type: Spontaneous
  Country: US (occurrence: None)
  Receive Date: 20130723
  Receipt Date: 20130723
  Transmission Date: 20140515
  Serious: Yes (Hospitalization)
  Sender: FDA-Public Use
  Company Number: None

PATIENT
  Age: 34 Year
  Sex: Female

DRUGS (1)
  1. AVONEX 30 MCG BIOGEN [Suspect]
     Route: 030
     Dates: start: 20110722

REACTIONS (3)
  - Stress [None]
  - Loss of consciousness [None]
  - Heart rate irregular [None]
